FAERS Safety Report 4332755-9 (Version None)
Quarter: 2004Q1

REPORT INFORMATION
  Report Type: 
  Country: None (occurrence: None)
  Receive Date: 20040330
  Receipt Date: 20040318
  Transmission Date: 20041129
  Serious: No
  Sender: FDA-Public Use
  Company Number: 04P-062-0254202-00

PATIENT
  Sex: Female

DRUGS (2)
  1. ERGENYL (DEPAKENE) (SODIUM VALPROATE/VALPROIX ACID) [Suspect]
     Dates: start: 20040101
  2. ANTIBIOTICS [Concomitant]

REACTIONS (2)
  - DIABETES MELLITUS [None]
  - POLYURIA [None]
